FAERS Safety Report 11562974 (Version 1)
Quarter: 2015Q3

REPORT INFORMATION
  Report Type: Spontaneous
  Country: US (occurrence: US)
  Receive Date: 20150916
  Receipt Date: 20150916
  Transmission Date: 20151125
  Serious: No
  Sender: FDA-Public Use
  Company Number: US-ELI_LILLY_AND_COMPANY-US200901001024

PATIENT
  Age: 75 Year
  Sex: Female
  Weight: 47.17 kg

DRUGS (3)
  1. MULTIVITAMIN [Concomitant]
     Active Substance: VITAMINS
  2. FORTEO [Suspect]
     Active Substance: TERIPARATIDE
     Indication: OSTEOPOROSIS
     Dosage: 20 UG, DAILY (1/D)
     Dates: start: 200807
  3. CALCIUM WITH VITAMIN D [Concomitant]
     Active Substance: CALCIUM\VITAMIN D

REACTIONS (14)
  - Feeling abnormal [Not Recovered/Not Resolved]
  - Gastrointestinal disorder [Recovered/Resolved]
  - Tremor [Not Recovered/Not Resolved]
  - Diarrhoea [Recovered/Resolved]
  - Skin atrophy [Not Recovered/Not Resolved]
  - Asthenia [Not Recovered/Not Resolved]
  - Skin disorder [Not Recovered/Not Resolved]
  - Laceration [Not Recovered/Not Resolved]
  - Impaired healing [Recovered/Resolved]
  - Gastrointestinal motility disorder [Recovered/Resolved]
  - Weight decreased [Not Recovered/Not Resolved]
  - Decreased appetite [Not Recovered/Not Resolved]
  - Skin fragility [Not Recovered/Not Resolved]
  - Nausea [Recovered/Resolved]

NARRATIVE: CASE EVENT DATE: 2008
